FAERS Safety Report 21412905 (Version 2)
Quarter: 2022Q4

REPORT INFORMATION
  Report Type: Other
  Country: UZ (occurrence: None)
  Receive Date: 20221005
  Receipt Date: 20221006
  Transmission Date: 20230113
  Serious: Yes (Other)
  Sender: FDA-Public Use
  Company Number: UZ-ROCHE-3187794

PATIENT

DRUGS (2)
  1. CAPECITABINE [Suspect]
     Active Substance: CAPECITABINE
     Indication: Triple negative breast cancer
     Dosage: IN MORNING AND EVENING ON DAYS 1 TO 14
     Route: 048
  2. VINORELBINE [Suspect]
     Active Substance: VINORELBINE TARTRATE
     Indication: Triple negative breast cancer
     Dosage: ON DAYS 1 AND 5
     Route: 042

REACTIONS (1)
  - Deep vein thrombosis [Unknown]
